FAERS Safety Report 17229107 (Version 3)
Quarter: 2020Q1

REPORT INFORMATION
  Report Type: Report from Study
  Country: JP (occurrence: JP)
  Receive Date: 20200103
  Receipt Date: 20200128
  Transmission Date: 20200409
  Serious: Yes (Hospitalization)
  Sender: FDA-Public Use
  Company Number: JP-ROCHE-2409354

PATIENT
  Age: 67 Year
  Sex: Female
  Weight: 61.6 kg

DRUGS (17)
  1. MAGMITT [Concomitant]
     Active Substance: MAGNESIUM OXIDE
     Indication: CONSTIPATION
     Dosage: AT THE OBSTIPATION
     Route: 048
     Dates: start: 20190830
  2. LOPERAMIDE [Concomitant]
     Active Substance: LOPERAMIDE
     Indication: DIARRHOEA
     Dosage: SINGLE USE AND BEGINNING OF DOSAGE DAY: TRIAL PREINITIATION
     Route: 048
  3. BEVACIZUMAB. [Suspect]
     Active Substance: BEVACIZUMAB
     Indication: NON-SMALL CELL LUNG CANCER
     Route: 041
     Dates: start: 20190828
  4. SENNOSIDE [SENNOSIDE A+B] [Concomitant]
     Active Substance: SENNOSIDES A AND B
     Indication: CONSTIPATION
     Dosage: AT THE OBSTIPATION
     Route: 048
     Dates: start: 20190831
  5. METHYCOBAL [Concomitant]
     Active Substance: METHYLCOBALAMIN
     Indication: PROPHYLAXIS
     Route: 030
     Dates: start: 20190808
  6. PEMETREXED DISODIUM HEPTAHYDRATE [Suspect]
     Active Substance: PEMETREXED
     Indication: NON-SMALL CELL LUNG CANCER
     Route: 041
     Dates: start: 20190828
  7. TELEMINSOFT [Concomitant]
     Active Substance: BISACODYL
     Indication: CONSTIPATION
     Dosage: AT THE OBSTIPATION
     Route: 054
     Dates: start: 20190831
  8. MYSER [DIFLUPREDNATE] [Concomitant]
     Indication: RASH
     Route: 062
  9. CARBOPLATIN. [Suspect]
     Active Substance: CARBOPLATIN
     Indication: NON-SMALL CELL LUNG CANCER
     Dosage: AUC 5
     Route: 041
     Dates: start: 20190828
  10. ATEZOLIZUMAB. [Suspect]
     Active Substance: ATEZOLIZUMAB
     Indication: NON-SMALL CELL LUNG CANCER
     Route: 041
     Dates: start: 20190828, end: 20190828
  11. HIRUDOID [Concomitant]
     Active Substance: GLYCOSAMINOGLYCANS
     Indication: DRY SKIN PROPHYLAXIS
     Dosage: PROPERLY
     Route: 062
  12. KARY UNI [Concomitant]
     Active Substance: PIRENOXINE
     Indication: CATARACT
     Dosage: AND 0.005% FOUR TIMES OF BOTH EYES/BEGINNING OF DOSAGE DAY: TRIAL PREINITIATION
     Route: 047
  13. TEARBALANCE [Concomitant]
     Active Substance: HYALURONATE SODIUM
     Indication: EYE DISORDER PROPHYLAXIS
     Dosage: ...BOTH EYE.. PROPERLY
     Route: 047
  14. SAMSCA [Concomitant]
     Active Substance: TOLVAPTAN
     Indication: POLYURIA
     Route: 048
     Dates: start: 20190918, end: 20190923
  15. WHITE PETROLATUM [Concomitant]
     Active Substance: PETROLATUM
     Indication: DECUBITUS ULCER
     Dosage: PROPER QUANTITY DURING A DAY ONCE
     Route: 062
     Dates: start: 20190919
  16. LOCOID [Concomitant]
     Active Substance: HYDROCORTISONE BUTYRATE
     Indication: DECUBITUS ULCER
     Dosage: DOSAGE IS UNCERTAIN.
     Route: 062
  17. KCL [Concomitant]
     Active Substance: POTASSIUM CHLORIDE
     Indication: ELECTROLYTE SUBSTITUTION THERAPY
     Dosage: ONCE DURING TWO KITS AND DAYS
     Route: 041
     Dates: start: 20190918, end: 20190920

REACTIONS (4)
  - Decreased appetite [Recovered/Resolved]
  - Febrile neutropenia [Recovered/Resolved]
  - Hyponatraemia [Recovered/Resolved]
  - Guillain-Barre syndrome [Recovering/Resolving]

NARRATIVE: CASE EVENT DATE: 20190904
